FAERS Safety Report 20526878 (Version 1)
Quarter: 2022Q1

REPORT INFORMATION
  Report Type: Spontaneous
  Country: CN (occurrence: CN)
  Receive Date: 20220228
  Receipt Date: 20220228
  Transmission Date: 20220423
  Serious: Yes (Hospitalization, Other)
  Sender: FDA-Public Use
  Company Number: CN-PFIZER INC-202200276804

PATIENT
  Age: 65 Year
  Sex: Male

DRUGS (3)
  1. GLIPIZIDE [Suspect]
     Active Substance: GLIPIZIDE
     Indication: Blood glucose abnormal
     Dosage: 5 MG, 1X/DAY
     Route: 048
     Dates: start: 20220120, end: 20220123
  2. METFORMIN HYDROCHLORIDE [Suspect]
     Active Substance: METFORMIN HYDROCHLORIDE
     Indication: Blood glucose abnormal
     Dosage: 0.5 G, 1X/DAY
     Route: 048
     Dates: start: 20220120, end: 20220123
  3. PIOGLITAZONE HYDROCHLORIDE [Suspect]
     Active Substance: PIOGLITAZONE HYDROCHLORIDE
     Indication: Blood glucose abnormal
     Dosage: 30 MG, 1X/DAY
     Route: 048
     Dates: start: 20220120, end: 20220123

REACTIONS (5)
  - Hypoglycaemic coma [Recovering/Resolving]
  - Heart rate increased [Unknown]
  - Respiratory rate increased [Unknown]
  - Blood pressure systolic increased [Unknown]
  - Decreased appetite [Unknown]
